FAERS Safety Report 18631737 (Version 1)
Quarter: 2020Q4

REPORT INFORMATION
  Report Type: Spontaneous
  Country: US (occurrence: US)
  Receive Date: 20201217
  Receipt Date: 20201217
  Transmission Date: 20210114
  Serious: No
  Sender: FDA-Public Use
  Company Number: US-ENDO PHARMACEUTICALS INC-2020-006619

PATIENT
  Age: 47 Year
  Sex: Male

DRUGS (2)
  1. XIAFLEX [Suspect]
     Active Substance: COLLAGENASE CLOSTRIDIUM HISTOLYTICUM
     Indication: PEYRONIE^S DISEASE
     Dosage: UNK UNKNOWN, UNKNOWN; CYCLE ON, INJECTION TWO
     Route: 026
     Dates: start: 20200929
  2. XIAFLEX [Suspect]
     Active Substance: COLLAGENASE CLOSTRIDIUM HISTOLYTICUM
     Dosage: UNK UNKNOWN, UNKNOWN; CYCLE ON, INJECTION ONE
     Route: 026
     Dates: start: 20200818

REACTIONS (4)
  - Incorrect product administration duration [Unknown]
  - Pain [Unknown]
  - Contusion [Unknown]
  - Mass [Unknown]

NARRATIVE: CASE EVENT DATE: 20200929
